FAERS Safety Report 4337553-8 (Version None)
Quarter: 2004Q1

REPORT INFORMATION
  Report Type: 
  Country: None (occurrence: None)
  Receive Date: 20040329
  Receipt Date: 20031223
  Transmission Date: 20041129
  Serious: No
  Sender: FDA-Public Use
  Company Number: USA031255355

PATIENT
  Age: 14 Year
  Sex: Male
  Weight: 57 kg

DRUGS (1)
  1. STRATTERA [Suspect]
     Indication: ATTENTION DEFICIT/HYPERACTIVITY DISORDER
     Dosage: 100 MG/DAY
     Dates: start: 20031014, end: 20031223

REACTIONS (3)
  - DRUG INEFFECTIVE [None]
  - PRESCRIBED OVERDOSE [None]
  - TIC [None]
